FAERS Safety Report 22721713 (Version 2)
Quarter: 2024Q3

REPORT INFORMATION
  Report Type: Spontaneous
  Country: US (occurrence: US)
  Receive Date: 20230719
  Receipt Date: 20240723
  Transmission Date: 20241017
  Serious: No
  Sender: OTSUKA
  Company Number: US-OTSUKA-2023_006946

PATIENT
  Age: 64 Year
  Sex: Female
  Weight: 88.45 kg

DRUGS (4)
  1. REXULTI [Suspect]
     Active Substance: BREXPIPRAZOLE
     Indication: Major depression
     Dosage: 2 MG, QD
     Route: 065
     Dates: start: 202212, end: 202301
  2. REXULTI [Suspect]
     Active Substance: BREXPIPRAZOLE
     Indication: Bipolar disorder
  3. VRAYLAR [Suspect]
     Active Substance: CARIPRAZINE
     Indication: Bipolar disorder
     Dosage: 1.5 MG, QD
     Route: 065
     Dates: start: 202302, end: 2023
  4. VRAYLAR [Suspect]
     Active Substance: CARIPRAZINE
     Indication: Major depression

REACTIONS (3)
  - Malaise [Not Recovered/Not Resolved]
  - Inability to afford medication [Unknown]
  - Product use in unapproved indication [Unknown]

NARRATIVE: CASE EVENT DATE: 20221201
